FAERS Safety Report 14532479 (Version 1)
Quarter: 2018Q1

REPORT INFORMATION
  Report Type: Other
  Country: US (occurrence: US)
  Receive Date: 20180214
  Receipt Date: 20180214
  Transmission Date: 20180509
  Serious: No
  Sender: FDA-Public Use
  Company Number: US-TARO-2017TAR00190

PATIENT
  Sex: Male
  Weight: 117.91 kg

DRUGS (2)
  1. CLOMIPRAMINE HCL CAPSULES 50 MG [Suspect]
     Active Substance: CLOMIPRAMINE HYDROCHLORIDE
     Indication: MAJOR DEPRESSION
     Dosage: 100 MG, 1X/DAY
     Route: 048
     Dates: start: 20161003, end: 20161103
  2. CLOMIPRAMINE HCL CAPSULES 50 MG [Suspect]
     Active Substance: CLOMIPRAMINE HYDROCHLORIDE
     Indication: OBSESSIVE-COMPULSIVE DISORDER

REACTIONS (2)
  - Product substitution issue [Recovered/Resolved]
  - Drug ineffective [Recovered/Resolved]
